FAERS Safety Report 13914110 (Version 1)
Quarter: 2017Q3

REPORT INFORMATION
  Report Type: Spontaneous
  Country: US (occurrence: US)
  Receive Date: 20170828
  Receipt Date: 20170828
  Transmission Date: 20171127
  Serious: No
  Sender: FDA-Public Use
  Company Number: US-ROCHE-1124054

PATIENT
  Sex: Female
  Weight: 40.3 kg

DRUGS (3)
  1. NUTROPIN AQ [Suspect]
     Active Substance: SOMATROPIN
     Route: 058
     Dates: start: 19990610
  2. NUTROPIN AQ [Suspect]
     Active Substance: SOMATROPIN
     Indication: DWARFISM
     Route: 058
     Dates: start: 199801
  3. NUTROPIN AQ [Suspect]
     Active Substance: SOMATROPIN
     Route: 058
     Dates: start: 19990127

REACTIONS (2)
  - Bronchial hyperreactivity [Unknown]
  - Hypersensitivity [Unknown]
